FAERS Safety Report 11347486 (Version 1)
Quarter: 2015Q3

REPORT INFORMATION
  Report Type: Report from Study
  Country: NL (occurrence: NL)
  Receive Date: 20150806
  Receipt Date: 20150806
  Transmission Date: 20151125
  Serious: Yes (Death)
  Sender: FDA-Public Use
  Company Number: NL-ABBVIE-14P-114-1304273-00

PATIENT
  Age: 88 Year
  Sex: Female

DRUGS (1)
  1. DUODOPA [Suspect]
     Active Substance: CARBIDOPA\LEVODOPA
     Indication: PARKINSON^S DISEASE
     Dosage: CONTINUOUS 20/5 MG/ML, MD: 2.9, CD: 1.8, ED: UNKNOWN, ND: UNKNOWN
     Route: 050
     Dates: start: 20130130, end: 20141104

REACTIONS (1)
  - Death [Fatal]

NARRATIVE: CASE EVENT DATE: 20141104
